FAERS Safety Report 4596793-3 (Version None)
Quarter: 2005Q1

REPORT INFORMATION
  Report Type: 
  Country: None (occurrence: None)
  Receive Date: 20050228
  Receipt Date: 20050214
  Transmission Date: 20050727
  Serious: Yes (Death, Other)
  Sender: FDA-Public Use
  Company Number: 2005010287

PATIENT
  Sex: Female

DRUGS (7)
  1. CELEBREX [Suspect]
     Indication: ARTHRITIS
     Dates: start: 19990504, end: 20041214
  2. TEMAZEPAM [Concomitant]
  3. CLOPIDOGREL BISULFATE [Concomitant]
  4. ETRAFON-D (AMITRIPTYLINE HYDROCHLORIDE, PERPHENAZINE) [Concomitant]
  5. QUINIDINE GLUCONATE (QUINIDINE GLUCONATE) [Concomitant]
  6. FUROSEMIDE [Concomitant]
  7. CONJUGATED ESTROGENS [Concomitant]

REACTIONS (2)
  - ACUTE MYOCARDIAL INFARCTION [None]
  - CARDIAC ARREST [None]
